FAERS Safety Report 19092367 (Version 2)
Quarter: 2021Q2

REPORT INFORMATION
  Report Type: Spontaneous
  Country: US (occurrence: US)
  Receive Date: 20210405
  Receipt Date: 20210419
  Transmission Date: 20210717
  Serious: Yes (Hospitalization)
  Sender: FDA-Public Use
  Company Number: US-PFIZER INC-2020059260

PATIENT
  Age: 38 Year
  Sex: Female
  Weight: 72.3 kg

DRUGS (11)
  1. SILDENAFIL CITRATE. [Suspect]
     Active Substance: SILDENAFIL CITRATE
     Dosage: 20 MG
  2. ORENITRAM [Suspect]
     Active Substance: TREPROSTINIL
     Dosage: 2.5 MG
  3. SILDENAFIL CITRATE. [Suspect]
     Active Substance: SILDENAFIL CITRATE
     Dosage: UNK
     Dates: start: 20200203
  4. TREPROSTINIL. [Suspect]
     Active Substance: TREPROSTINIL
     Dosage: 0.375 MG, 3X/DAY (THREE TIMES A DAY (TID) VIA ORAL (PO) ROUTE)
     Route: 048
     Dates: start: 202102
  5. ORENITRAM [Suspect]
     Active Substance: TREPROSTINIL
     Dosage: UNK
  6. AMBRISENTAN [Suspect]
     Active Substance: AMBRISENTAN
     Dosage: 10 MG, UNK
  7. ORENITRAM [Suspect]
     Active Substance: TREPROSTINIL
     Dosage: 0.25 MG
  8. ORENITRAM [Suspect]
     Active Substance: TREPROSTINIL
     Dosage: 2.5 MG, 3X/DAY
     Route: 048
     Dates: start: 202102
  9. ORENITRAM [Suspect]
     Active Substance: TREPROSTINIL
     Indication: PULMONARY ARTERIAL HYPERTENSION
     Dosage: 2.5 MG, 3X/DAY
     Route: 048
     Dates: start: 20180209
  10. AMBRISENTAN [Suspect]
     Active Substance: AMBRISENTAN
     Dosage: UNK
     Dates: start: 20200203
  11. TREPROSTINIL. [Suspect]
     Active Substance: TREPROSTINIL
     Indication: PULMONARY ARTERIAL HYPERTENSION
     Dosage: 2.5 MG, 3X/DAY
     Route: 048
     Dates: start: 20180209

REACTIONS (2)
  - Blood pressure decreased [Unknown]
  - Presyncope [Unknown]

NARRATIVE: CASE EVENT DATE: 202102
